FAERS Safety Report 9165858 (Version 3)
Quarter: 2013Q2

REPORT INFORMATION
  Report Type: Report from Study
  Country: KR (occurrence: KR)
  Receive Date: 20130315
  Receipt Date: 20130508
  Transmission Date: 20140414
  Serious: Yes (Death, Life-Threatening, Other)
  Sender: FDA-Public Use
  Company Number: KR-ROCHE-1202415

PATIENT
  Age: 70 Year
  Sex: Female

DRUGS (5)
  1. MABTHERA [Suspect]
     Indication: VASCULITIS
     Route: 042
  2. MABTHERA [Suspect]
     Indication: GRANULOMA
     Route: 042
     Dates: start: 20130117
  3. MABTHERA [Suspect]
     Route: 042
     Dates: start: 20130124
  4. MABTHERA [Suspect]
     Route: 042
     Dates: start: 20130131
  5. MABTHERA [Suspect]
     Route: 042
     Dates: start: 20130207

REACTIONS (3)
  - Cholangitis sclerosing [Fatal]
  - Biliary sepsis [Unknown]
  - Hepatic encephalopathy [Unknown]
